FAERS Safety Report 21876657 (Version 1)
Quarter: 2023Q1

REPORT INFORMATION
  Report Type: Spontaneous
  Country: CN (occurrence: CN)
  Receive Date: 20230118
  Receipt Date: 20230118
  Transmission Date: 20230418
  Serious: Yes (Death, Hospitalization)
  Sender: FDA-Public Use
  Company Number: CN-STRIDES ARCOLAB LIMITED-2023SP000808

PATIENT
  Age: 28 Year
  Sex: Male

DRUGS (7)
  1. DOXORUBICIN [Suspect]
     Active Substance: DOXORUBICIN
     Indication: Castleman^s disease
     Dosage: UNK (AS A PART OF R-CHOP REGIMEN; 3 COURSES)
     Route: 065
  2. DEXAMETHASONE [Suspect]
     Active Substance: DEXAMETHASONE
     Indication: Castleman^s disease
     Dosage: UNK (AS A PART OF RD REGIMEN)
     Route: 065
  3. PREDNISOLONE [Suspect]
     Active Substance: PREDNISOLONE
     Indication: Castleman^s disease
     Dosage: UNK (AS A PART OF R-CHOP REGIMEN; 3 COURSES)
     Route: 065
  4. RITUXIMAB [Suspect]
     Active Substance: RITUXIMAB
     Indication: Castleman^s disease
     Dosage: UNK (AS A PART OF RD REGIMEN)
     Route: 065
  5. RITUXIMAB [Suspect]
     Active Substance: RITUXIMAB
     Dosage: UNK (AS APART OF R-CHOP REGIMEN ( 3 COURSES))
     Route: 065
  6. CYCLOPHOSPHAMIDE [Suspect]
     Active Substance: CYCLOPHOSPHAMIDE
     Indication: Castleman^s disease
     Dosage: UNK (AS A PART OF R-CHOP REGIMEN; 3 COURSES)
     Route: 065
  7. VINCRISTINE [Suspect]
     Active Substance: VINCRISTINE
     Indication: Castleman^s disease
     Dosage: UNK (AS A PART OF R-CHOP REGIMEN; 3 COURSES)
     Route: 065

REACTIONS (4)
  - Respiratory failure [Fatal]
  - Drug ineffective for unapproved indication [Fatal]
  - Dyspnoea [Unknown]
  - Diarrhoea [Unknown]
